FAERS Safety Report 4337994-9 (Version None)
Quarter: 2004Q2

REPORT INFORMATION
  Report Type: 
  Country: None (occurrence: None)
  Receive Date: 20040408
  Receipt Date: 20040326
  Transmission Date: 20050107
  Serious: Yes (Hospitalization)
  Sender: FDA-Public Use
  Company Number: 2004011675

PATIENT
  Sex: Male

DRUGS (2)
  1. VIAGRA [Suspect]
     Indication: ILL-DEFINED DISORDER
  2. ORGANIC NITRATES (ORGANIC NITRATES) [Concomitant]

REACTIONS (3)
  - HYPOTENSION [None]
  - PULMONARY OEDEMA [None]
  - SELF-MEDICATION [None]
